FAERS Safety Report 6565556-1 (Version None)
Quarter: 2010Q1

REPORT INFORMATION
  Report Type: 
  Country: None (occurrence: None)
  Receive Date: 20100201
  Receipt Date: 20100121
  Transmission Date: 20100710
  Serious: Yes (Death, Life-Threatening, Disabling)
  Sender: FDA-Public Use
  Company Number: JP-JNJFOC-20091202926

PATIENT
  Sex: Female
  Weight: 64 kg

DRUGS (12)
  1. DOXORUBICIN HCL [Suspect]
     Indication: OVARIAN CANCER RECURRENT
     Dosage: CYCLE 1
     Route: 042
     Dates: start: 20090702, end: 20090827
  2. DOXORUBICIN HCL [Suspect]
     Dosage: CYCLE 3
     Route: 042
     Dates: start: 20090702, end: 20090827
  3. DOXORUBICIN HCL [Suspect]
     Dosage: CYCLE 2
     Route: 042
     Dates: start: 20090702, end: 20090827
  4. NASEA [Concomitant]
     Indication: PROPHYLAXIS
     Route: 042
  5. NASEA [Concomitant]
     Route: 042
  6. NASEA [Concomitant]
     Route: 042
  7. PRIMPERAN TAB [Concomitant]
     Indication: DECREASED APPETITE
     Route: 048
  8. PRIMPERAN TAB [Concomitant]
     Route: 048
  9. GEMZAR [Concomitant]
     Route: 042
  10. OXYCONTIN [Concomitant]
     Indication: CANCER PAIN
     Route: 048
  11. OXYCONTIN [Concomitant]
     Route: 048
  12. OXYCONTIN [Concomitant]
     Route: 048

REACTIONS (3)
  - INTESTINAL OBSTRUCTION [None]
  - OVARIAN CANCER [None]
  - PULMONARY INFARCTION [None]
